FAERS Safety Report 26109844 (Version 1)
Quarter: 2025Q4

REPORT INFORMATION
  Report Type: Spontaneous
  Country: CA (occurrence: CA)
  Receive Date: 20251201
  Receipt Date: 20251201
  Transmission Date: 20260118
  Serious: Yes (Other)
  Sender: ASCEND THERAPEUTICS US, LLC
  Company Number: CA-Ascend Therapeutics US, LLC-2189575

PATIENT
  Age: 57 Year
  Sex: Female

DRUGS (2)
  1. ESTROGEL [Suspect]
     Active Substance: ESTRADIOL
     Indication: Hormone therapy
  2. ESTRADIOL [Suspect]
     Active Substance: ESTRADIOL

REACTIONS (4)
  - Haemorrhage [Recovering/Resolving]
  - Product substitution issue [Recovering/Resolving]
  - Breast swelling [Recovering/Resolving]
  - Breast pain [Recovering/Resolving]
